FAERS Safety Report 5070907-3 (Version None)
Quarter: 2006Q3

REPORT INFORMATION
  Report Type: 
  Country: None (occurrence: None)
  Receive Date: 20060804
  Receipt Date: 20060726
  Transmission Date: 20061208
  Serious: Yes (Other)
  Sender: FDA-Public Use
  Company Number: US-NOVOPROD-255590

PATIENT
  Age: 4 Year
  Sex: Male

DRUGS (1)
  1. NORDITROPIN NORDIFLEX [Suspect]
     Indication: DRUG USE FOR UNKNOWN INDICATION
     Dosage: .5 MG, QD
     Route: 058
     Dates: start: 20060427

REACTIONS (5)
  - GLAUCOMA [None]
  - INTRACRANIAL PRESSURE INCREASED [None]
  - OPTIC NERVE DISORDER [None]
  - OPTIC NERVE GLIOMA [None]
  - PAPILLOEDEMA [None]
